FAERS Safety Report 10994662 (Version 2)
Quarter: 2015Q2

REPORT INFORMATION
  Report Type: Report from Study
  Country: AU (occurrence: AU)
  Receive Date: 20150407
  Receipt Date: 20150521
  Transmission Date: 20150821
  Serious: Yes (Disabling)
  Sender: FDA-Public Use
  Company Number: AU-SA-2015SA041929

PATIENT
  Age: 55 Year
  Sex: Female

DRUGS (4)
  1. DIABEX [Concomitant]
     Active Substance: METFORMIN HYDROCHLORIDE
  2. VITAMIN D [Concomitant]
     Active Substance: CHOLECALCIFEROL
  3. MICARDIS [Concomitant]
     Active Substance: TELMISARTAN
  4. AUBAGIO [Suspect]
     Active Substance: TERIFLUNOMIDE
     Indication: MULTIPLE SCLEROSIS
     Route: 048
     Dates: start: 20130830, end: 20150415

REACTIONS (5)
  - Disability [Not Recovered/Not Resolved]
  - Therapeutic response decreased [Unknown]
  - Condition aggravated [Unknown]
  - Walking aid user [Not Recovered/Not Resolved]
  - Balance disorder [Not Recovered/Not Resolved]
